FAERS Safety Report 7480955-1 (Version None)
Quarter: 2011Q2

REPORT INFORMATION
  Report Type: 
  Country: None (occurrence: None)
  Receive Date: 20110516
  Receipt Date: 20110511
  Transmission Date: 20111010
  Serious: Yes (Other)
  Sender: FDA-Public Use
  Company Number: JP-BAYER-2011-040772

PATIENT
  Age: 60 Year
  Sex: Male
  Weight: 68 kg

DRUGS (8)
  1. CANDESARTAN CILEXETIL [Concomitant]
     Dosage: 4 MG, QD
     Route: 048
     Dates: start: 20030619
  2. TAGAMET [Concomitant]
     Dosage: 400 MG, QD
     Route: 048
     Dates: start: 20030619
  3. ADEROXAL [Concomitant]
     Dosage: 60 MG, QD
     Route: 048
     Dates: start: 20030619
  4. ALLOPURINOL [Concomitant]
     Dosage: 100 MG, QD
     Route: 048
     Dates: start: 20040715
  5. ALFAROL [Concomitant]
     Dosage: 1 ?G, QD
     Route: 048
     Dates: start: 20030619
  6. NEXAVAR [Suspect]
     Indication: RENAL CELL CARCINOMA
     Dosage: 800 MG, QD
     Route: 048
     Dates: start: 20080515
  7. AMLODIPINE [Concomitant]
     Dosage: 5 MG, QD
     Route: 048
     Dates: start: 20030619
  8. NEXAVAR [Suspect]
     Dosage: 400 MG, QD
     Route: 048
     Dates: start: 20080530

REACTIONS (4)
  - GASTRIC ULCER [None]
  - ELECTROCARDIOGRAM Q WAVE ABNORMAL [None]
  - SKIN EXFOLIATION [None]
  - DIARRHOEA [None]
